FAERS Safety Report 10351800 (Version 3)
Quarter: 2015Q1

REPORT INFORMATION
  Report Type: Spontaneous
  Country: DK (occurrence: DK)
  Receive Date: 20140730
  Receipt Date: 20150320
  Transmission Date: 20150720
  Serious: Yes (Hospitalization, Disabling)
  Sender: FDA-Public Use
  Company Number: DK-DKMA-20090996

PATIENT
  Age: 46 Year
  Sex: Male

DRUGS (1)
  1. ANTABUSE [Suspect]
     Active Substance: DISULFIRAM
     Indication: PRODUCT USED FOR UNKNOWN INDICATION
     Dosage: 1 DF, UNK
     Route: 048
     Dates: start: 20070912

REACTIONS (12)
  - Hepatic failure [Recovered/Resolved with Sequelae]
  - Diarrhoea [Unknown]
  - Drug-induced liver injury [Recovered/Resolved with Sequelae]
  - Yellow skin [Unknown]
  - Ocular icterus [Unknown]
  - Pseudomonas infection [Recovered/Resolved]
  - Hernia [Unknown]
  - Pain in extremity [Unknown]
  - Liver transplant [Not Recovered/Not Resolved]
  - Muscle spasms [Unknown]
  - Fatigue [Unknown]
  - Nausea [Unknown]

NARRATIVE: CASE EVENT DATE: 20071007
